FAERS Safety Report 5609722-8 (Version None)
Quarter: 2008Q1

REPORT INFORMATION
  Report Type: 
  Country: None (occurrence: None)
  Receive Date: 20080131
  Receipt Date: 20070723
  Transmission Date: 20080703
  Serious: No
  Sender: FDA-Public Use
  Company Number: US-BAYER-200712350BCC

PATIENT
  Sex: Female
  Weight: 102 kg

DRUGS (2)
  1. ALEVE COLD AND SINUS [Suspect]
     Indication: NASAL CONGESTION
     Dosage: TOTAL DAILY DOSE: 220 MG  UNIT DOSE: 220 MG
     Route: 048
     Dates: start: 20070722
  2. ALEVE COLD AND SINUS [Suspect]
     Dosage: TOTAL DAILY DOSE: 440 MG  UNIT DOSE: 220 MG
     Route: 048
     Dates: start: 20070723, end: 20070723

REACTIONS (2)
  - NASAL CONGESTION [None]
  - SINUS HEADACHE [None]
